FAERS Safety Report 8961029 (Version 1)
Quarter: 2012Q4

REPORT INFORMATION
  Report Type: 
  Country: NL (occurrence: NL)
  Receive Date: 20121212
  Receipt Date: 20121212
  Transmission Date: 20130627
  Serious: Yes (Hospitalization)
  Sender: FDA-Public Use
  Company Number: NL-PFIZER INC-2012308845

PATIENT
  Age: 35 Year
  Sex: Female
  Weight: 68 kg

DRUGS (19)
  1. GENOTROPIN [Suspect]
     Dosage: 1.0 mg, 1x/day,7 injections/week
     Route: 058
     Dates: start: 20030424
  2. FOLIC ACID [Concomitant]
     Indication: EPILEPSY
     Dosage: UNK
     Dates: start: 19870615
  3. FOLIC ACID [Concomitant]
     Indication: CONVULSIONS
  4. FOLIC ACID [Concomitant]
     Indication: SEIZURES
  5. FOLIC ACID [Concomitant]
     Indication: EPILEPSY
     Dosage: UNK
     Dates: start: 19960115
  6. FOLIC ACID [Concomitant]
     Indication: CONVULSIONS
  7. ETHINYLESTRADIOL [Concomitant]
     Indication: LUTEINIZING HORMONE DEFICIENCY
     Dosage: UNK
     Dates: start: 19981112
  8. ETHINYLESTRADIOL [Concomitant]
     Indication: FOLLICLE-STIMULATING HORMONE DEFICIENCY
  9. ETHINYLESTRADIOL [Concomitant]
     Indication: HYPOGONADISM FEMALE
  10. LEVONORGESTREL [Concomitant]
     Indication: LUTEINIZING HORMONE DEFICIENCY
     Dosage: UNK
     Dates: start: 19981112
  11. LEVONORGESTREL [Concomitant]
     Indication: FOLLICLE-STIMULATING HORMONE DEFICIENCY
  12. LEVONORGESTREL [Concomitant]
     Indication: HYPOGONADISM FEMALE
  13. VALPROATE SODIUM [Concomitant]
     Indication: EPILEPSY
     Dosage: UNK
     Dates: start: 20030215
  14. VALPROATE SODIUM [Concomitant]
     Indication: CONVULSIONS
  15. MEDROXYPROGESTERONE [Concomitant]
     Indication: LUTEINIZING HORMONE DEFICIENCY
     Dosage: UNK
     Dates: start: 20030715
  16. MEDROXYPROGESTERONE [Concomitant]
     Indication: FOLLICLE-STIMULATING HORMONE DEFICIENCY
  17. MEDROXYPROGESTERONE [Concomitant]
     Indication: HYPOGONADISM FEMALE
  18. TOPAMAX [Concomitant]
     Indication: EPILEPSY
     Dosage: UNK
     Dates: start: 20030901
  19. TOPAMAX [Concomitant]
     Indication: CONVULSION

REACTIONS (1)
  - Epilepsy [Unknown]
